FAERS Safety Report 9024613 (Version 2)
Quarter: 2013Q1

REPORT INFORMATION
  Report Type: Spontaneous
  Country: US (occurrence: None)
  Receive Date: 20121231
  Receipt Date: 20130128
  Transmission Date: 20140127
  Serious: Yes (Other)
  Sender: FDA-Public Use
  Company Number: JPI-P-027928

PATIENT
  Age: 48 Year
  Sex: Female
  Weight: 149.69 kg

DRUGS (6)
  1. XYREM [Suspect]
     Indication: CATAPLEXY
     Route: 048
     Dates: start: 200809
  2. MODAFINIL [Concomitant]
  3. VENLAFAXINE [Concomitant]
  4. METHYLPHENIDATE HYDROCHLORIDE [Concomitant]
  5. METHYLPHENIDATE HYDROCHLORIDE EXTENDED-RELEASE [Concomitant]
  6. METFORMIN HCL [Concomitant]

REACTIONS (3)
  - Dysgeusia [None]
  - Weight decreased [None]
  - Gastrectomy [None]
